FAERS Safety Report 4283765-1 (Version None)
Quarter: 2004Q1

REPORT INFORMATION
  Report Type: 
  Country: None (occurrence: None)
  Receive Date: 20040130
  Receipt Date: 20040130
  Transmission Date: 20041129
  Serious: Yes (Hospitalization)
  Sender: FDA-Public Use
  Company Number: None

PATIENT
  Age: 66 Year
  Sex: Male

DRUGS (3)
  1. CARBOPLATIN [Suspect]
     Indication: CARCINOMA
     Dosage: 602MG QD INTRAVENOUS
     Route: 042
     Dates: start: 20031024, end: 20031024
  2. PACLITAXEL [Suspect]
     Indication: CARCINOMA
     Dosage: 381MG QD INTRAVENOUS
     Route: 042
     Dates: start: 20031024, end: 20031024
  3. HYDROCHLOROTHIAZIDE [Concomitant]

REACTIONS (3)
  - DEHYDRATION [None]
  - HYPERGLYCAEMIA [None]
  - VOMITING [None]
